FAERS Safety Report 26127015 (Version 1)
Quarter: 2025Q4

REPORT INFORMATION
  Report Type: Spontaneous
  Country: US (occurrence: US)
  Receive Date: 20251205
  Receipt Date: 20251205
  Transmission Date: 20260118
  Serious: No
  Sender: PRIMUS PHARMACEUTICALS
  Company Number: US-PRIMUS-2025-US-047739

PATIENT
  Age: 61 Year
  Sex: Male

DRUGS (3)
  1. IMPOYZ [Suspect]
     Active Substance: CLOBETASOL PROPIONATE
     Indication: Product used for unknown indication
     Dosage: SIG: APPLY TOPICALLY TO THE AFFECTED AREA(S) TWICE A DAY FOR 1-2 WEEKS AS NEEDED FOR FLARES
     Route: 061
     Dates: start: 20250926
  2. ASPIRIN [Concomitant]
     Active Substance: ASPIRIN
  3. LISINOPRIL [Concomitant]
     Active Substance: LISINOPRIL

REACTIONS (3)
  - Application site pain [Unknown]
  - Condition aggravated [Unknown]
  - Paraesthesia [Unknown]
